FAERS Safety Report 11891434 (Version 1)
Quarter: 2016Q1

REPORT INFORMATION
  Report Type: Spontaneous
  Country: DE (occurrence: None)
  Receive Date: 20160105
  Receipt Date: 20160105
  Transmission Date: 20160526
  Serious: Yes (Hospitalization)
  Sender: FDA-Public Use
  Company Number: None

PATIENT
  Sex: Male
  Weight: 59 kg

DRUGS (6)
  1. METAMIZOL [Concomitant]
     Active Substance: METAMIZOLE SODIUM
  2. FENTANYL. [Concomitant]
     Active Substance: FENTANYL
  3. DACLATASVIR 60 MG BMS [Suspect]
     Active Substance: DACLATASVIR
     Indication: HEPATITIS C
     Route: 048
     Dates: start: 20150324, end: 20150610
  4. FERROSANOL DUODENAL [Concomitant]
     Active Substance: FERROGLYCINE SULFATE
  5. MATRIX [Concomitant]
  6. SOFOSBUVIR 400MG GILEAD [Suspect]
     Active Substance: SOFOSBUVIR
     Indication: HEPATITIS C
     Route: 048
     Dates: start: 20150324, end: 20150610

REACTIONS (1)
  - Abdominal pain [None]

NARRATIVE: CASE EVENT DATE: 20150408
